FAERS Safety Report 25530024 (Version 2)
Quarter: 2025Q3

REPORT INFORMATION
  Report Type: Spontaneous
  Country: US (occurrence: US)
  Receive Date: 20250708
  Receipt Date: 20250820
  Transmission Date: 20251020
  Serious: Yes (Hospitalization, Other)
  Sender: DOMPE FARMACEUTICI
  Company Number: US-FARMAPROD-202506-2183

PATIENT
  Sex: Female

DRUGS (24)
  1. OXERVATE [Suspect]
     Active Substance: CENEGERMIN-BKBJ
     Indication: Neurotrophic keratopathy
     Route: 047
     Dates: start: 20250425
  2. OXERVATE [Suspect]
     Active Substance: CENEGERMIN-BKBJ
     Route: 047
     Dates: start: 20250812
  3. OXERVATE [Suspect]
     Active Substance: CENEGERMIN-BKBJ
  4. DICYCLOMINE HYDROCHLORIDE [Concomitant]
     Active Substance: DICYCLOMINE HYDROCHLORIDE
  5. ALPRAZOLAM [Concomitant]
     Active Substance: ALPRAZOLAM
  6. SLEEP AID (DIPHENHYDRAMINE HYDROCHLORIDE) [Concomitant]
     Active Substance: DIPHENHYDRAMINE HYDROCHLORIDE
  7. ZINC [Concomitant]
     Active Substance: ZINC
  8. LYRICA [Concomitant]
     Active Substance: PREGABALIN
  9. ACETAMINOPHEN [Concomitant]
     Active Substance: ACETAMINOPHEN
  10. IBUPROFEN [Concomitant]
     Active Substance: IBUPROFEN
  11. ONDANSETRON HYDROCHLORIDE [Concomitant]
     Active Substance: ONDANSETRON HYDROCHLORIDE
  12. BACLOFEN [Concomitant]
     Active Substance: BACLOFEN
  13. MAGNESIUM OXIDE [Concomitant]
     Active Substance: MAGNESIUM OXIDE
  14. ELESTRIN [Concomitant]
     Active Substance: ESTRADIOL
  15. MECLIZINE HYDROCHLORIDE [Concomitant]
     Active Substance: MECLIZINE HYDROCHLORIDE
  16. CYCLOSPORINE [Concomitant]
     Active Substance: CYCLOSPORINE
  17. VITAMIN C [Concomitant]
     Active Substance: ASCORBIC ACID
  18. MALIC ACID [Concomitant]
     Active Substance: MALIC ACID
  19. VITAMIN D3-VITAMIN K2 [Concomitant]
  20. LYSINE [Concomitant]
     Active Substance: LYSINE
  21. ASPIRIN [Concomitant]
     Active Substance: ASPIRIN
  22. FAMOTIDINE [Concomitant]
     Active Substance: FAMOTIDINE
  23. ASPIRIN [Concomitant]
     Active Substance: ASPIRIN
  24. MAGNESIUM [Concomitant]
     Active Substance: MAGNESIUM

REACTIONS (2)
  - Hospitalisation [Not Recovered/Not Resolved]
  - Brain neoplasm [Unknown]
